FAERS Safety Report 5421603-1 (Version None)
Quarter: 2007Q3

REPORT INFORMATION
  Report Type: 
  Country: None (occurrence: None)
  Receive Date: 20070726
  Receipt Date: 20070329
  Transmission Date: 20080115
  Serious: Yes (Hospitalization)
  Sender: FDA-Public Use
  Company Number: US200704000181

PATIENT
  Age: 84 Year
  Sex: Male

DRUGS (3)
  1. FORTEO [Suspect]
     Dates: start: 20050101
  2. FORTEO PEN (TERIPARATIDE) PEN, DISPOSABLE [Concomitant]
  3. COUMADIN [Concomitant]

REACTIONS (2)
  - CARDIAC DISORDER [None]
  - DYSPNOEA [None]
